FAERS Safety Report 7097433-4 (Version None)
Quarter: 2010Q4

REPORT INFORMATION
  Report Type: 
  Country: None (occurrence: None)
  Receive Date: 20101111
  Receipt Date: 20101102
  Transmission Date: 20110411
  Serious: Yes (Hospitalization, Other)
  Sender: FDA-Public Use
  Company Number: US-ASTRAZENECA-2010SE52033

PATIENT
  Age: 84 Year
  Sex: Male

DRUGS (10)
  1. CRESTOR [Suspect]
     Route: 048
     Dates: end: 20101026
  2. CASODEX [Concomitant]
  3. GLIPIZIDE [Concomitant]
     Dosage: DAILY
  4. DETROL [Concomitant]
  5. LASIX [Concomitant]
  6. PREDNISONE [Concomitant]
  7. CLONIDINE [Concomitant]
  8. TRIAMTERENE/HCT [Concomitant]
     Dosage: 37.5/25 DAILY
  9. ASPIRIN [Concomitant]
     Dosage: 325 DAILY
  10. POTASSIUM CHLORIDE [Concomitant]

REACTIONS (5)
  - ADVERSE EVENT [None]
  - BLOOD CREATINE PHOSPHOKINASE INCREASED [None]
  - BLOOD CREATININE INCREASED [None]
  - BLOOD UREA INCREASED [None]
  - MALAISE [None]
